FAERS Safety Report 8111397-3 (Version None)
Quarter: 2012Q1

REPORT INFORMATION
  Report Type: 
  Country: None (occurrence: None)
  Receive Date: 20120203
  Receipt Date: 20111107
  Transmission Date: 20120608
  Serious: No
  Sender: FDA-Public Use
  Company Number: US-GLAXOSMITHKLINE-A0952189A

PATIENT
  Age: 27 Year
  Sex: Male

DRUGS (3)
  1. ZOLOFT [Concomitant]
  2. LAMICTAL [Suspect]
     Indication: BIPOLAR DISORDER
     Dosage: 100MG PER DAY
     Route: 048
     Dates: start: 20101201, end: 20110301
  3. RISPERDAL [Concomitant]

REACTIONS (2)
  - PRODUCT QUALITY ISSUE [None]
  - WEIGHT INCREASED [None]
